FAERS Safety Report 7658205-2 (Version None)
Quarter: 2011Q3

REPORT INFORMATION
  Report Type: 
  Country: None (occurrence: None)
  Receive Date: 20110805
  Receipt Date: 20110728
  Transmission Date: 20111222
  Serious: Yes (Other)
  Sender: FDA-Public Use
  Company Number: IT-JNJFOC-20110712377

PATIENT
  Sex: Female

DRUGS (2)
  1. LEVOFLOXACIN [Suspect]
     Indication: BRONCHITIS
     Route: 065
     Dates: start: 20110701, end: 20110701
  2. NEBIVOLOL HCL [Concomitant]
     Route: 065
     Dates: start: 20100511, end: 20100512

REACTIONS (3)
  - FACE OEDEMA [None]
  - DYSPHONIA [None]
  - DYSPNOEA [None]
